FAERS Safety Report 10590148 (Version 1)
Quarter: 2014Q4

REPORT INFORMATION
  Report Type: Spontaneous
  Country: US (occurrence: None)
  Receive Date: 20141117
  Receipt Date: 20141117
  Transmission Date: 20150529
  Serious: Yes (Disabling)
  Sender: FDA-Public Use
  Company Number: None

PATIENT
  Age: 29 Year
  Sex: Female
  Weight: 81.65 kg

DRUGS (1)
  1. MIRENA [Suspect]
     Active Substance: LEVONORGESTREL

REACTIONS (10)
  - Weight increased [None]
  - Panic attack [None]
  - Pain in extremity [None]
  - Headache [None]
  - Disturbance in attention [None]
  - Device dislocation [None]
  - Irritability [None]
  - Back pain [None]
  - Memory impairment [None]
  - Coital bleeding [None]

NARRATIVE: CASE EVENT DATE: 20111123
